FAERS Safety Report 7627721-1 (Version None)
Quarter: 2011Q3

REPORT INFORMATION
  Report Type: 
  Country: None (occurrence: None)
  Receive Date: 20110721
  Receipt Date: 20110715
  Transmission Date: 20111222
  Serious: Yes (Other)
  Sender: FDA-Public Use
  Company Number: CHPA2011US09415

PATIENT
  Age: 81 Year
  Sex: Female

DRUGS (3)
  1. EXCEDRIN (MIGRAINE) [Suspect]
     Indication: HEADACHE
     Dosage: UNK DF, UNK
     Route: 048
     Dates: start: 19960101
  2. EXCEDRIN (MIGRAINE) [Suspect]
     Dosage: 6-8 DF, QD
     Route: 048
  3. FIORINAL [Concomitant]
     Indication: HEADACHE
     Dosage: UNK, PRN

REACTIONS (8)
  - INCORRECT DRUG ADMINISTRATION DURATION [None]
  - CRANIOTOMY [None]
  - SURGERY [None]
  - SKIN CANCER [None]
  - BRAIN NEOPLASM [None]
  - BRAIN TUMOUR OPERATION [None]
  - SKIN INJURY [None]
  - CRANIOPLASTY [None]
